FAERS Safety Report 8789652 (Version 1)
Quarter: 2012Q4

REPORT INFORMATION
  Report Type: Spontaneous
  Country: AU (occurrence: None)
  Receive Date: 20120906
  Receipt Date: 20120911
  Transmission Date: 20130627
  Serious: No
  Sender: FDA-Public Use
  Company Number: THQ2012A07922

PATIENT
  Age: 76 Year
  Sex: Male

DRUGS (15)
  1. ACTOS (PIOGLITAZONE HYDROCHLORIDE) [Suspect]
     Indication: DRUG USE FOR UNKNOWN INDICATION
  2. ZANIDIP [Suspect]
     Indication: DRUG USE FOR UNKNOWN INDICATION
  3. PRISTIQ [Suspect]
     Indication: DEPRESSION
  4. DUATROL [Suspect]
     Indication: DRUG USE FOR UNKNOWN INDICATION
     Dosage: (Two 6 hourly PRN)
  5. ALDOMET [Suspect]
     Indication: DRUG USE FOR UNKNOWN INDICATION
     Dosage: (three)
  6. ACETYLSALICYLIC ACID [Suspect]
     Indication: DRUG USE FOR UNKNOWN INDICATION
     Dosage: Each morning
  7. ZOCOR [Suspect]
     Indication: DRUG USE FOR UNKNOWN INDICATION
  8. KARVEZIDE [Suspect]
     Indication: DRUG USE FOR UNKNOWN INDICATION
  9. LANTUS [Suspect]
     Indication: DRUG USE FOR UNKNOWN INDICATION
  10. METFORMIN [Suspect]
     Indication: DRUG USE FOR UNKNOWN INDICATION
     Dosage: (1000 mg,2 in 1 D)
  11. METOPROLOL [Suspect]
     Indication: DRUG USE FOR UNKNOWN INDICATION
     Dosage: (1 DF, 2 in 1 D)
  12. METOPROLOL [Suspect]
     Indication: DRUG USE FOR UNKNOWN INDICATION
  13. NEXIUM I.V. [Suspect]
     Indication: DRUG USE FOR UNKNOWN INDICATION
  14. NOVORAPID [Suspect]
     Indication: DRUG USE FOR UNKNOWN INDICATION
  15. TRITACE [Suspect]
     Indication: DRUG USE FOR UNKNOWN INDICATION

REACTIONS (1)
  - Hyponatraemia [None]
